FAERS Safety Report 13111224 (Version 2)
Quarter: 2017Q1

REPORT INFORMATION
  Report Type: Spontaneous
  Country: None (occurrence: US)
  Receive Date: 20170112
  Receipt Date: 20170303
  Transmission Date: 20170428
  Serious: No
  Sender: FDA-Public Use
  Company Number: US-MERZ NORTH AMERICA, INC.-17MRZ-00014

PATIENT
  Age: 51 Year
  Sex: Female
  Weight: 63.56 kg

DRUGS (1)
  1. XEOMIN [Suspect]
     Active Substance: INCOBOTULINUMTOXINA
     Indication: PRODUCT USED FOR UNKNOWN INDICATION
     Dosage: 54 UNITS TOTAL :?20 UNITS GLABELLAR?12 UNITS (R) PERIORBITAL AREA ?12 UNITS (L) PERIORBITAL AREA ?10
     Route: 030

REACTIONS (6)
  - Eye swelling [Unknown]
  - Fatigue [Recovering/Resolving]
  - Eyelid ptosis [Unknown]
  - Nausea [Recovering/Resolving]
  - Headache [Recovering/Resolving]
  - Vomiting [Recovering/Resolving]

NARRATIVE: CASE EVENT DATE: 20170107
